FAERS Safety Report 7388504-3 (Version None)
Quarter: 2011Q2

REPORT INFORMATION
  Report Type: 
  Country: None (occurrence: None)
  Receive Date: 20110401
  Receipt Date: 20110329
  Transmission Date: 20111010
  Serious: Yes (Death)
  Sender: FDA-Public Use
  Company Number: PHHY2010JP59048

PATIENT
  Sex: Male
  Weight: 54 kg

DRUGS (11)
  1. VALSARTAN [Suspect]
     Dosage: 80 MG, QD
     Route: 048
     Dates: start: 20071002
  2. LASIX [Concomitant]
     Indication: HYPERTENSION
     Dosage: 120 MG, UNK
     Route: 048
     Dates: start: 20071001, end: 20071122
  3. ASPIRIN [Concomitant]
     Dosage: 100 MG, UNK
     Route: 048
     Dates: start: 20071004, end: 20080214
  4. CLARITHROMYCIN [Concomitant]
     Dosage: 200 MG, UNK
     Route: 048
     Dates: start: 20071116, end: 20071213
  5. ENALAPRIL MALEATE [Concomitant]
     Indication: HYPERTENSION
     Dosage: 5 MG, UNK
     Route: 048
     Dates: start: 20071017, end: 20071101
  6. VALSARTAN [Suspect]
     Dosage: 80 MG IN 2 DIVIDED DOSES DAILY
     Route: 048
     Dates: start: 20071009
  7. VALSARTAN [Suspect]
     Dosage: 80 MG, UNK
     Route: 048
     Dates: start: 20071123, end: 20071206
  8. ALDACTONE [Concomitant]
     Indication: HYPERTENSION
     Dosage: 25 MG, UNK
     Route: 048
     Dates: start: 20071113, end: 20071122
  9. CAMOSTAT MESILATE [Concomitant]
     Dosage: 300 MG, UNK
     Route: 048
     Dates: end: 20080214
  10. TAKEPRON [Concomitant]
     Dosage: 15 MG, UNK
     Route: 048
     Dates: end: 20080214
  11. SALOBEL [Concomitant]
     Dosage: 50 MG, UNK
     Route: 048
     Dates: start: 20071129, end: 20080214

REACTIONS (2)
  - HYPOTENSION [None]
  - DEATH [None]
